FAERS Safety Report 17954051 (Version 1)
Quarter: 2020Q2

REPORT INFORMATION
  Report Type: Spontaneous
  Country: DE (occurrence: DE)
  Receive Date: 20200629
  Receipt Date: 20200629
  Transmission Date: 20200714
  Serious: Yes (Hospitalization)
  Sender: FDA-Public Use
  Company Number: DE-TEVA-2020-DE-1790556

PATIENT
  Age: 70 Year
  Sex: Male
  Weight: 70 kg

DRUGS (12)
  1. PANTOPRAZOL [Concomitant]
     Active Substance: PANTOPRAZOLE SODIUM
     Dosage: 40 MILLIGRAM DAILY; 1-0-0-0
  2. METFORMIN [Suspect]
     Active Substance: METFORMIN HYDROCHLORIDE
     Dosage: 2000 MILLIGRAM DAILY;  1-0-1-0
  3. SITAGLIPTIN [Suspect]
     Active Substance: SITAGLIPTIN
     Dosage: 100 MILLIGRAM DAILY; 1-0-1-0
  4. FERRO SANOL DUODENAL 100MG (FE2+) [Concomitant]
     Dosage: 100 MILLIGRAM DAILY; 1-0-0-0
  5. BISOPROLOL [Concomitant]
     Active Substance: BISOPROLOL
     Dosage: .5 DOSAGE FORMS DAILY; 5 MG, 0.5-0-0-0
  6. SIMVASTATIN. [Concomitant]
     Active Substance: SIMVASTATIN
     Dosage: 40 MILLIGRAM DAILY; 1-0-0-0
  7. RAMIPRIL. [Suspect]
     Active Substance: RAMIPRIL
     Dosage: 2.5 MILLIGRAM DAILY;  1-0-0-0
  8. SPIRONOLACTON [Suspect]
     Active Substance: SPIRONOLACTONE
     Dosage: .5 DOSAGE FORMS DAILY; 50 MG, 0.5-0-0-0
  9. INSULIN GLARGIN [Concomitant]
     Active Substance: INSULIN GLARGINE
     Dosage: 0-0-0-12
     Route: 058
  10. TRAMADOL. [Concomitant]
     Active Substance: TRAMADOL
     Dosage: 100 MG, NEED
     Route: 048
  11. TORASEMID [Suspect]
     Active Substance: TORSEMIDE
     Dosage: 20 MILLIGRAM DAILY; 1-1-0-0
  12. ACETYLSALICYLSAURE [Concomitant]
     Active Substance: ASPIRIN
     Dosage: 100 MILLIGRAM DAILY; 100 MG, 1-0-0-0

REACTIONS (9)
  - Hyperglycaemia [Unknown]
  - Renal impairment [Unknown]
  - Electrolyte imbalance [Unknown]
  - Incontinence [Unknown]
  - Musculoskeletal chest pain [Unknown]
  - Therapeutic drug monitoring analysis not performed [Unknown]
  - Product monitoring error [Unknown]
  - Condition aggravated [Unknown]
  - Polyuria [Unknown]
